FAERS Safety Report 14039599 (Version 1)
Quarter: 2017Q4

REPORT INFORMATION
  Report Type: Spontaneous
  Country: TR (occurrence: TR)
  Receive Date: 20171004
  Receipt Date: 20171004
  Transmission Date: 20180321
  Serious: Yes (Other)
  Sender: FDA-Public Use
  Company Number: TR-TEVA-811378ROM

PATIENT
  Age: 57 Year
  Sex: Female

DRUGS (4)
  1. CISPLATIN. [Suspect]
     Active Substance: CISPLATIN
     Indication: ADENOCARCINOMA GASTRIC
     Dosage: 80 MG/M2 ON DAY 1 EVERY 3 WEEKS; IN SECOND CYCLE DOSE REDUCED IN THE RATE OF 25%
     Route: 041
  2. TRASTUZUMAB. [Suspect]
     Active Substance: TRASTUZUMAB
     Dosage: 6 MG/KG EVERY 3 WEEKS; SECOND CYCLE WITH SAME DOSE
     Route: 041
  3. TRASTUZUMAB. [Suspect]
     Active Substance: TRASTUZUMAB
     Indication: ADENOCARCINOMA GASTRIC
     Dosage: 8 MG/KG ON DAY 1 OF THE FIRST CYCLE, FOLLOWED BY 6 MG/KG EVERY 3 WEEKS
     Route: 041
  4. CAPECITABINE. [Suspect]
     Active Substance: CAPECITABINE
     Indication: ADENOCARCINOMA GASTRIC
     Dosage: 1000 MG/M2 TWICE A DAY FOR 14 DAYS FOLLOWED BY A 1-WEEK REST EVERY 3 WEEKS; 2ND CYCLE WITH SAME DOSE
     Route: 048

REACTIONS (1)
  - Peripheral artery thrombosis [Recovered/Resolved]
